FAERS Safety Report 15275445 (Version 5)
Quarter: 2019Q1

REPORT INFORMATION
  Report Type: Spontaneous
  Country: DK (occurrence: DK)
  Receive Date: 20180814
  Receipt Date: 20190102
  Transmission Date: 20190417
  Serious: Yes (Death, Life-Threatening, Hospitalization, Congenital Anomaly, Other)
  Sender: FDA-Public Use
  Company Number: DK-MYLANLABS-DK2013139898

PATIENT
  Age: 80 Year
  Sex: Female

DRUGS (2)
  1. METHOTREXATE. [Suspect]
     Active Substance: METHOTREXATE
     Indication: RHEUMATOID ARTHRITIS
     Dosage: 2.5 MG, 4X/DAY
     Route: 048
  2. METHOTREXATE. [Suspect]
     Active Substance: METHOTREXATE
     Indication: RHEUMATIC DISORDER
     Dosage: 2.5 MG, 4X/DAY (10 MG)
     Route: 065

REACTIONS (11)
  - Pancytopenia [Unknown]
  - Diarrhoea haemorrhagic [Unknown]
  - Inappropriate schedule of product administration [Fatal]
  - Sepsis [Fatal]
  - Product administration error [Unknown]
  - Incorrect dose administered [Unknown]
  - Toxicity to various agents [Unknown]
  - Abdominal pain upper [Unknown]
  - Oral pain [Unknown]
  - Septic shock [Fatal]
  - Pyrexia [Unknown]
